FAERS Safety Report 8028706-6 (Version None)
Quarter: 2012Q1

REPORT INFORMATION
  Report Type: 
  Country: None (occurrence: None)
  Receive Date: 20120106
  Receipt Date: 20111227
  Transmission Date: 20120608
  Serious: Yes (Other)
  Sender: FDA-Public Use
  Company Number: US-UCBSA-048503

PATIENT
  Age: 62 Year
  Sex: Female

DRUGS (2)
  1. CIMZIA [Suspect]
     Indication: RHEUMATOID ARTHRITIS
     Route: 058
     Dates: start: 20111025
  2. CIPROFLOXACIN [Concomitant]
     Indication: KIDNEY INFECTION
     Dates: start: 20111122

REACTIONS (3)
  - SKIN DISCOLOURATION [None]
  - OEDEMA PERIPHERAL [None]
  - KIDNEY INFECTION [None]
